FAERS Safety Report 4918560-0 (Version None)
Quarter: 2006Q1

REPORT INFORMATION
  Report Type: 
  Country: None (occurrence: None)
  Receive Date: 20060221
  Receipt Date: 20060221
  Transmission Date: 20060701
  Serious: Yes (Other)
  Sender: FDA-Public Use
  Company Number: None

PATIENT
  Age: 36 Year
  Sex: Male
  Weight: 77.1115 kg

DRUGS (2)
  1. LAMICTAL [Suspect]
     Indication: BIPOLAR DISORDER
     Dosage: 75 MG TWICE DAILY ORALLY
     Route: 048
     Dates: start: 20060207, end: 20060216
  2. KLONOPIN [Concomitant]

REACTIONS (1)
  - STEVENS-JOHNSON SYNDROME [None]
